FAERS Safety Report 8956549 (Version 2)
Quarter: 2012Q4

REPORT INFORMATION
  Report Type: 
  Country: US (occurrence: US)
  Receive Date: 20121210
  Receipt Date: 20121226
  Transmission Date: 20130627
  Serious: No
  Sender: FDA-Public Use
  Company Number: US-009507513-1212USA002250

PATIENT
  Sex: Female

DRUGS (3)
  1. RIBAVIRIN [Suspect]
     Indication: HEPATITIS C
     Dosage: UNK
     Route: 048
     Dates: start: 20121113
  2. VICTRELIS [Suspect]
     Indication: HEPATITIS C
     Dosage: UNK
     Route: 048
     Dates: start: 20121214
  3. PEGASYS [Suspect]
     Indication: HEPATITIS C
     Dosage: UNK
     Dates: start: 20121113

REACTIONS (9)
  - Blood glucose decreased [Unknown]
  - Hypoglycaemia [Unknown]
  - Hypoaesthesia [Unknown]
  - Dizziness [Unknown]
  - Nasopharyngitis [Unknown]
  - Dry eye [Unknown]
  - Dry skin [Unknown]
  - Chapped lips [Unknown]
  - Anaemia [Unknown]
